FAERS Safety Report 16917264 (Version 2)
Quarter: 2019Q4

REPORT INFORMATION
  Report Type: Spontaneous
  Country: IT (occurrence: IT)
  Receive Date: 20191015
  Receipt Date: 20191226
  Transmission Date: 20200122
  Serious: Yes (Hospitalization)
  Sender: FDA-Public Use
  Company Number: IT-AUROBINDO-AUR-APL-2019-066594

PATIENT
  Age: 9 Month
  Sex: Male
  Weight: 8 kg

DRUGS (1)
  1. PARACETAMOL [Suspect]
     Active Substance: ACETAMINOPHEN
     Indication: PRODUCT USED FOR UNKNOWN INDICATION
     Dosage: 1300 MILLIGRAM, IN TOTAL
     Route: 042
     Dates: start: 20190327

REACTIONS (2)
  - Drug level increased [Unknown]
  - Medication error [Unknown]

NARRATIVE: CASE EVENT DATE: 20190327
